FAERS Safety Report 6141405-0 (Version None)
Quarter: 2009Q1

REPORT INFORMATION
  Report Type: 
  Country: None (occurrence: None)
  Receive Date: 20090331
  Receipt Date: 20090320
  Transmission Date: 20090719
  Serious: Yes (Other)
  Sender: FDA-Public Use
  Company Number: 2009AP001191

PATIENT
  Age: 28 Year
  Sex: Male

DRUGS (2)
  1. CLONAZEPAM [Suspect]
     Indication: ANXIETY
     Dosage: 0.5 MG; TAB; PO; QD
     Route: 048
     Dates: start: 20080101
  2. CLONAZEPAM [Suspect]
     Indication: PANIC ATTACK
     Dosage: 0.5 MG; TAB; PO; QD
     Route: 048
     Dates: start: 20080101

REACTIONS (7)
  - DRUG DEPENDENCE [None]
  - INAPPROPRIATE SCHEDULE OF DRUG ADMINISTRATION [None]
  - PRODUCTIVE COUGH [None]
  - RESPIRATORY TRACT INFECTION [None]
  - RHINORRHOEA [None]
  - SINUSITIS [None]
  - WITHDRAWAL SYNDROME [None]
